FAERS Safety Report 25634755 (Version 2)
Quarter: 2025Q3

REPORT INFORMATION
  Report Type: Other
  Country: US (occurrence: US)
  Receive Date: 20250801
  Receipt Date: 20250805
  Transmission Date: 20251021
  Serious: Yes (Hospitalization, Other)
  Sender: HLS THERAPEUTICS
  Company Number: US-HLS-202500283

PATIENT
  Age: 23 Year
  Sex: Female

DRUGS (10)
  1. CLOZAPINE [Suspect]
     Active Substance: CLOZAPINE
     Indication: Autism spectrum disorder
     Route: 065
     Dates: end: 202202
  2. CLOZAPINE [Suspect]
     Active Substance: CLOZAPINE
     Indication: Schizophrenia
     Route: 065
     Dates: end: 202202
  3. ARIPIPRAZOLE [Concomitant]
     Active Substance: ARIPIPRAZOLE
     Route: 065
  4. AMISULPRIDE [Concomitant]
     Active Substance: AMISULPRIDE
     Route: 065
  5. BIPERIDEN [Concomitant]
     Active Substance: BIPERIDEN
     Route: 065
  6. LURASIDONE [Concomitant]
     Active Substance: LURASIDONE
     Route: 065
  7. LURASIDONE [Concomitant]
     Active Substance: LURASIDONE
     Route: 065
     Dates: start: 202207
  8. LURASIDONE [Concomitant]
     Active Substance: LURASIDONE
     Route: 065
     Dates: start: 202208
  9. RISPERIDONE [Concomitant]
     Active Substance: RISPERIDONE
     Route: 065
     Dates: start: 202204, end: 202207
  10. QUETIAPINE [Concomitant]
     Active Substance: QUETIAPINE
     Route: 065
     Dates: start: 202203, end: 202204

REACTIONS (8)
  - Extrapyramidal disorder [Unknown]
  - COVID-19 [Unknown]
  - Mental impairment [Unknown]
  - Psychotic symptom [Unknown]
  - Neutropenia [Unknown]
  - Product use in unapproved indication [Unknown]
  - Pneumonia [Unknown]
  - White blood cell count decreased [Unknown]

NARRATIVE: CASE EVENT DATE: 20120101
